FAERS Safety Report 9426626 (Version 1)
Quarter: 2013Q3

REPORT INFORMATION
  Report Type: Spontaneous
  Country: US (occurrence: US)
  Receive Date: 20130730
  Receipt Date: 20130730
  Transmission Date: 20140515
  Serious: No
  Sender: FDA-Public Use
  Company Number: US-PFIZER INC-2013217889

PATIENT
  Sex: Female

DRUGS (1)
  1. ZYVOX [Suspect]
     Indication: STAPHYLOCOCCAL INFECTION
     Dosage: UNK

REACTIONS (6)
  - Local swelling [Unknown]
  - Joint swelling [Unknown]
  - X-ray abnormal [Unknown]
  - Hypersensitivity [Unknown]
  - Mammogram abnormal [Unknown]
  - Laboratory test abnormal [Unknown]
